FAERS Safety Report 9601802 (Version 1)
Quarter: 2013Q4

REPORT INFORMATION
  Report Type: Spontaneous
  Country: US (occurrence: None)
  Receive Date: 20131004
  Receipt Date: 20131004
  Transmission Date: 20140711
  Serious: Yes (Other)
  Sender: FDA-Public Use
  Company Number: None

PATIENT
  Age: 31 Year
  Sex: Female
  Weight: 52.62 kg

DRUGS (7)
  1. SULFAMETH/TRIMETHOPRIM [Suspect]
     Indication: STAPHYLOCOCCAL INFECTION
     Dosage: 2 PILLS, TWICE DAILY (ONE TABLET), ORALLY
     Route: 048
     Dates: start: 20130903, end: 20130906
  2. MULTI PRENATAL [Concomitant]
  3. PAPAYA ENZYMES [Concomitant]
  4. B-50 COMPLEX [Concomitant]
  5. D3 [Concomitant]
  6. MAGNESIUM + CHELATED ZINC [Concomitant]
  7. CALCIUM CITRATE +D [Concomitant]

REACTIONS (8)
  - Paraesthesia [None]
  - Insomnia [None]
  - Palpitations [None]
  - Anxiety [None]
  - Muscle tightness [None]
  - Sensation of heaviness [None]
  - Disturbance in attention [None]
  - Feeling hot [None]
